FAERS Safety Report 10074306 (Version 1)
Quarter: 2014Q2

REPORT INFORMATION
  Report Type: Spontaneous
  Country: US (occurrence: US)
  Receive Date: 20140411
  Receipt Date: 20140411
  Transmission Date: 20141212
  Serious: No
  Sender: FDA-Public Use
  Company Number: US-SANOFI-AVENTIS-2013SA047629

PATIENT
  Age: 32 Year
  Sex: 0

DRUGS (1)
  1. ALLEGRA D [Suspect]
     Dosage: 60/120 MG

REACTIONS (4)
  - Unevaluable event [Unknown]
  - Heart rate increased [Unknown]
  - Feeling abnormal [Recovered/Resolved]
  - Wrong technique in drug usage process [Unknown]
